FAERS Safety Report 8298214-6 (Version None)
Quarter: 2012Q2

REPORT INFORMATION
  Report Type: 
  Country: None (occurrence: None)
  Receive Date: 20120419
  Receipt Date: 20120229
  Transmission Date: 20120825
  Serious: No
  Sender: FDA-Public Use
  Company Number: US-BRISTOL-MYERS SQUIBB COMPANY-16426066

PATIENT
  Sex: Female

DRUGS (1)
  1. YERVOY [Suspect]
     Dosage: 2ND DOSE: 22FEB12 SCHEDULED 3RD DOSE: 14MAR12
     Dates: start: 20120201

REACTIONS (6)
  - ASTHENIA [None]
  - ARTHRALGIA [None]
  - NEUROPATHY PERIPHERAL [None]
  - POOR QUALITY SLEEP [None]
  - PAIN [None]
  - WEIGHT INCREASED [None]
